FAERS Safety Report 24221836 (Version 1)
Quarter: 2024Q3

REPORT INFORMATION
  Report Type: Spontaneous
  Country: US (occurrence: None)
  Receive Date: 20240819
  Receipt Date: 20240819
  Transmission Date: 20241017
  Serious: Yes (Hospitalization, Other)
  Sender: ASTRAZENECA
  Company Number: 2024A183667

PATIENT
  Sex: Female

DRUGS (1)
  1. BRILINTA [Suspect]
     Active Substance: TICAGRELOR
     Route: 048

REACTIONS (11)
  - Fall [Unknown]
  - Dysstasia [Unknown]
  - Cerebral haemorrhage [Unknown]
  - Cervical vertebral fracture [Unknown]
  - Pelvic fracture [Unknown]
  - Abdominal wall wound [Unknown]
  - Tooth injury [Unknown]
  - Fracture [Unknown]
  - Rotator cuff syndrome [Unknown]
  - Encephalitis [Unknown]
  - Dyspnoea [Unknown]
